FAERS Safety Report 9677135 (Version 1)
Quarter: 2013Q4

REPORT INFORMATION
  Report Type: Spontaneous
  Country: CA (occurrence: CA)
  Receive Date: 20131108
  Receipt Date: 20131108
  Transmission Date: 20140711
  Serious: Yes (Life-Threatening)
  Sender: FDA-Public Use
  Company Number: CA-ASTRAZENECA-2013SE81529

PATIENT
  Age: 54 Year
  Sex: Male

DRUGS (6)
  1. NEXIUM [Suspect]
     Route: 048
  2. NEXIUM [Suspect]
     Dosage: APO-ESOMEPRAZOLE, 40 MG, TWO TIMES A DAY
     Route: 048
  3. APO-CLOBAZAM [Concomitant]
  4. APO-LAMOTRIGINE [Concomitant]
  5. DILANTIN [Concomitant]
  6. ELTROXIN [Concomitant]

REACTIONS (4)
  - Amnesia [Not Recovered/Not Resolved]
  - Bipolar I disorder [Not Recovered/Not Resolved]
  - Decreased appetite [Not Recovered/Not Resolved]
  - Suicidal ideation [Not Recovered/Not Resolved]
